FAERS Safety Report 11098327 (Version 2)
Quarter: 2015Q4

REPORT INFORMATION
  Report Type: Spontaneous
  Country: DK (occurrence: DK)
  Receive Date: 20150507
  Receipt Date: 20151221
  Transmission Date: 20160304
  Serious: Yes (Other)
  Sender: FDA-Public Use
  Company Number: DK-B.I. PHARMACEUTICALS,INC./RIDGEFIELD-2015-BI-20237DB

PATIENT
  Age: 56 Year
  Sex: Female

DRUGS (2)
  1. CATAPRESAN [Suspect]
     Active Substance: CLONIDINE
     Route: 048
     Dates: start: 201409, end: 201412
  2. CATAPRESAN [Suspect]
     Active Substance: CLONIDINE
     Indication: PRODUCT USED FOR UNKNOWN INDICATION
     Route: 048
     Dates: start: 2014, end: 201409

REACTIONS (7)
  - Loose tooth [Not Recovered/Not Resolved]
  - Tooth abscess [Not Recovered/Not Resolved]
  - Periodontitis [Not Recovered/Not Resolved]
  - Root canal infection [Unknown]
  - Gingival recession [Not Recovered/Not Resolved]
  - Gingival abscess [Not Recovered/Not Resolved]
  - Dry mouth [Unknown]

NARRATIVE: CASE EVENT DATE: 2014
